FAERS Safety Report 16534132 (Version 1)
Quarter: 2019Q3

REPORT INFORMATION
  Report Type: Spontaneous
  Country: JP (occurrence: JP)
  Receive Date: 20190705
  Receipt Date: 20190705
  Transmission Date: 20191004
  Serious: Yes (Hospitalization)
  Sender: FDA-Public Use
  Company Number: JP-ASTRAZENECA-2019SE95462

PATIENT
  Sex: Female

DRUGS (1)
  1. SYMBICORT [Suspect]
     Active Substance: BUDESONIDE\FORMOTEROL FUMARATE DIHYDRATE
     Indication: ASTHMA
     Dosage: 4 PUFFS TWICE DAILY IN THE MORNING AND EVENING
     Route: 055

REACTIONS (3)
  - Dyspnoea [Unknown]
  - Back pain [Unknown]
  - Candida infection [Unknown]

NARRATIVE: CASE EVENT DATE: 201712
